FAERS Safety Report 6030434-3 (Version None)
Quarter: 2009Q1

REPORT INFORMATION
  Report Type: 
  Country: None (occurrence: None)
  Receive Date: 20090107
  Receipt Date: 20090102
  Transmission Date: 20090719
  Serious: No
  Sender: FDA-Public Use
  Company Number: US-BAYER-200833919NA

PATIENT

DRUGS (1)
  1. MAGNEVIST [Suspect]
     Dosage: AS USED: 15 ML

REACTIONS (1)
  - CONTRAST MEDIA REACTION [None]
